FAERS Safety Report 4365014-9 (Version None)
Quarter: 2004Q2

REPORT INFORMATION
  Report Type: 
  Country: None (occurrence: None)
  Receive Date: 20040521
  Receipt Date: 20040511
  Transmission Date: 20050107
  Serious: No
  Sender: FDA-Public Use
  Company Number: 04P-167-0260519-00

PATIENT
  Sex: Female

DRUGS (1)
  1. ULTIVA [Suspect]
     Indication: ANALGESIC EFFECT
     Dosage: INTRAVENOUS
     Route: 042

REACTIONS (2)
  - DEPRESSED LEVEL OF CONSCIOUSNESS [None]
  - SEDATION [None]
